FAERS Safety Report 5096084-0 (Version None)
Quarter: 2006Q3

REPORT INFORMATION
  Report Type: 
  Country: None (occurrence: None)
  Receive Date: 20060830
  Receipt Date: 20060818
  Transmission Date: 20061208
  Serious: Yes (Other)
  Sender: FDA-Public Use
  Company Number: USA-2006-0024988

PATIENT
  Age: 72 Year
  Sex: Male

DRUGS (4)
  1. OXYCONTIN [Suspect]
     Indication: RHEUMATOID ARTHRITIS
     Dosage: 10 MG, BID,
     Dates: start: 20050101
  2. ATIVAN [Concomitant]
  3. ANTIHYPERTENSIVES [Concomitant]
  4. ORAL ANTIDIABETICS [Concomitant]

REACTIONS (6)
  - AMNESIA [None]
  - CONFUSIONAL STATE [None]
  - HYPOACUSIS [None]
  - MENTAL IMPAIRMENT [None]
  - VISION BLURRED [None]
  - VISUAL ACUITY REDUCED [None]
